FAERS Safety Report 13312252 (Version 2)
Quarter: 2017Q1

REPORT INFORMATION
  Report Type: Report from Study
  Country: US (occurrence: US)
  Receive Date: 20170309
  Receipt Date: 20170324
  Transmission Date: 20170428
  Serious: No
  Sender: FDA-Public Use
  Company Number: US-JAZZ-2017-US-002425

PATIENT
  Sex: Female

DRUGS (18)
  1. IBUPROFEN. [Concomitant]
     Active Substance: IBUPROFEN
  2. TOLTERODINE TARTRATE. [Concomitant]
     Active Substance: TOLTERODINE TARTRATE
  3. MODAFINIL. [Concomitant]
     Active Substance: MODAFINIL
  4. XYREM [Suspect]
     Active Substance: SODIUM OXYBATE
     Dosage: DOSE ADJUSTMENT
     Route: 048
     Dates: start: 2015, end: 2016
  5. ADDERALL [Concomitant]
     Active Substance: AMPHETAMINE ASPARTATE\AMPHETAMINE SULFATE\DEXTROAMPHETAMINE SACCHARATE\DEXTROAMPHETAMINE SULFATE
  6. GABAPENTIN. [Concomitant]
     Active Substance: GABAPENTIN
  7. BACLOFEN. [Concomitant]
     Active Substance: BACLOFEN
  8. XYREM [Suspect]
     Active Substance: SODIUM OXYBATE
     Dosage: 3 G, BID
     Route: 048
  9. CITRUCEL [Concomitant]
     Active Substance: METHYLCELLULOSE (4000 MPA.S)
  10. NITRO-BID [Concomitant]
     Active Substance: NITROGLYCERIN
  11. GLUCOSAMINE CHONDROITIN            /01430901/ [Concomitant]
  12. MYRBETRIQ [Concomitant]
     Active Substance: MIRABEGRON
  13. VITAMIN D3 [Concomitant]
     Active Substance: CHOLECALCIFEROL
  14. AMPYRA [Concomitant]
     Active Substance: DALFAMPRIDINE
  15. NALTREXONE [Concomitant]
     Active Substance: NALTREXONE
  16. XYREM [Suspect]
     Active Substance: SODIUM OXYBATE
     Indication: NARCOLEPSY
     Dosage: 2.2 G, BID
     Route: 048
     Dates: start: 201509, end: 2015
  17. FLUOROURACIL. [Concomitant]
     Active Substance: FLUOROURACIL
  18. TECFIDERA [Concomitant]
     Active Substance: DIMETHYL FUMARATE

REACTIONS (8)
  - Balance disorder [Not Recovered/Not Resolved]
  - Intentional product use issue [Unknown]
  - Urinary incontinence [Unknown]
  - Somnolence [Unknown]
  - Wrong technique in product usage process [Unknown]
  - Condition aggravated [Not Recovered/Not Resolved]
  - Enuresis [Unknown]
  - Fall [Recovered/Resolved]
